FAERS Safety Report 8370286-X (Version None)
Quarter: 2012Q2

REPORT INFORMATION
  Report Type: 
  Country: None (occurrence: None)
  Receive Date: 20120518
  Receipt Date: 20120330
  Transmission Date: 20120825
  Serious: No
  Sender: FDA-Public Use
  Company Number: US-ASTRAZENECA-2012SE21661

PATIENT
  Sex: Male

DRUGS (3)
  1. PROBIOTIC [Concomitant]
     Indication: DIARRHOEA
  2. PRILOSEC OTC [Suspect]
     Indication: DIARRHOEA
     Route: 048
  3. METAMUCIL /00029101/ [Concomitant]
     Indication: DIARRHOEA

REACTIONS (4)
  - SOMNOLENCE [None]
  - CONDITION AGGRAVATED [None]
  - DIZZINESS [None]
  - DIARRHOEA [None]
